FAERS Safety Report 25569745 (Version 2)
Quarter: 2025Q3

REPORT INFORMATION
  Report Type: Spontaneous
  Country: US (occurrence: US)
  Receive Date: 20250717
  Receipt Date: 20250722
  Transmission Date: 20251020
  Serious: No
  Sender: SANOFI AVENTIS
  Company Number: US-SA-2025SA200404

PATIENT
  Age: 48 Year
  Sex: Female

DRUGS (2)
  1. DUPIXENT [Suspect]
     Active Substance: DUPILUMAB
     Indication: Asthma
     Dosage: 300 MG, Q4W
     Route: 058
     Dates: start: 202403
  2. DUPIXENT [Suspect]
     Active Substance: DUPILUMAB
     Indication: Nasal polyps

REACTIONS (3)
  - Psoriasis [Recovering/Resolving]
  - Arthralgia [Unknown]
  - Inappropriate schedule of product administration [Unknown]

NARRATIVE: CASE EVENT DATE: 20240301
